FAERS Safety Report 9779811 (Version 2)
Quarter: 2014Q1

REPORT INFORMATION
  Report Type: Report from Study
  Country: RU (occurrence: RU)
  Receive Date: 20131223
  Receipt Date: 20140106
  Transmission Date: 20141002
  Serious: Yes (Hospitalization)
  Sender: FDA-Public Use
  Company Number: RU-GLAXOSMITHKLINE-B0954876A

PATIENT
  Age: 57 Year
  Sex: Male
  Weight: 89 kg

DRUGS (7)
  1. OMACOR [Suspect]
     Indication: MYOCARDIAL INFARCTION
     Dosage: 1000MG PER DAY
     Route: 048
     Dates: start: 20130301
  2. WARFARIN [Suspect]
     Indication: MYOCARDIAL INFARCTION
     Dosage: 5MG PER DAY
     Route: 048
     Dates: start: 20130301, end: 20130328
  3. BISOPROLOL [Concomitant]
     Dosage: 5MG PER DAY
     Route: 048
     Dates: start: 20130209
  4. PERINDOPRIL [Concomitant]
     Dosage: 5MG PER DAY
     Route: 048
     Dates: start: 20130209
  5. ROSUVASTATIN [Concomitant]
     Dosage: 20MG PER DAY
     Route: 048
     Dates: start: 20130209
  6. ACETYLSALICYLIC ACID [Concomitant]
     Dosage: 75MG PER DAY
     Route: 048
     Dates: start: 20130402
  7. CLOPIDOGREL [Concomitant]
     Dosage: 75MG PER DAY
     Route: 048
     Dates: start: 20130402

REACTIONS (5)
  - Haematuria [Recovered/Resolved]
  - Haemorrhage subcutaneous [Recovered/Resolved]
  - Gingival bleeding [Unknown]
  - Drug interaction [Unknown]
  - Overdose [Unknown]
